FAERS Safety Report 9593006 (Version 3)
Quarter: 2013Q4

REPORT INFORMATION
  Report Type: Report from Study
  Country: US (occurrence: US)
  Receive Date: 20131004
  Receipt Date: 20131104
  Transmission Date: 20140711
  Serious: Yes (Death, Hospitalization, Other)
  Sender: FDA-Public Use
  Company Number: US-BAYER-2013-075836

PATIENT
  Age: 69 Year
  Sex: Female

DRUGS (6)
  1. NEXAVAR [Suspect]
     Indication: HEPATIC CANCER
     Dosage: 2X200 MG DAILY
     Route: 048
     Dates: start: 20130524, end: 201305
  2. NEXAVAR [Suspect]
     Indication: HEPATIC CANCER
     Dosage: 400 MG, BID
     Route: 048
     Dates: start: 20130529
  3. NEXAVAR [Suspect]
     Indication: HEPATIC CANCER
     Dosage: 2X200 MG DAILY
     Route: 048
     Dates: end: 2013
  4. NEXAVAR [Suspect]
     Indication: HEPATIC CANCER
     Dosage: 800MG DAILY
     Route: 048
     Dates: start: 2013, end: 2013
  5. NEXAVAR [Suspect]
     Indication: HEPATIC CANCER
     Dosage: 400 MG, BID
     Route: 048
     Dates: start: 2013, end: 2013
  6. NEXAVAR [Suspect]
     Indication: HEPATIC CANCER
     Dosage: 2X200 MG
     Route: 048
     Dates: start: 2013, end: 201310

REACTIONS (7)
  - Death [Fatal]
  - Hepatic infection [None]
  - Loss of consciousness [None]
  - Pruritus [None]
  - Erythema [None]
  - Rash [None]
  - Blister [None]
